FAERS Safety Report 8105169-3 (Version None)
Quarter: 2012Q1

REPORT INFORMATION
  Report Type: 
  Country: None (occurrence: None)
  Receive Date: 20120201
  Receipt Date: 20120126
  Transmission Date: 20120608
  Serious: Yes (Other)
  Sender: FDA-Public Use
  Company Number: US-PFIZER INC-2012004905

PATIENT
  Sex: Female
  Weight: 58.957 kg

DRUGS (10)
  1. LYRICA [Suspect]
     Indication: MUSCULOSKELETAL PAIN
  2. OMEPRAZOLE [Concomitant]
     Dosage: 20 MG
  3. LYRICA [Suspect]
     Indication: NECK PAIN
     Dosage: 50 MG, 2X/DAY
     Route: 048
     Dates: start: 20090501
  4. OXYCODONE [Concomitant]
     Dosage: UNK
  5. AMBIEN [Concomitant]
     Dosage: UNK
  6. ALPRAZOLAM [Concomitant]
     Dosage: UNK
  7. EFFEXOR [Suspect]
     Indication: DEPRESSION
     Dosage: 150 MG, 3X/DAY
     Route: 048
     Dates: start: 20060101
  8. METHOCARBAMOL [Concomitant]
     Dosage: UNK
  9. LYRICA [Suspect]
     Indication: PAIN IN EXTREMITY
  10. HYDROCODONE [Concomitant]
     Dosage: UNK

REACTIONS (3)
  - DRUG EFFECT DECREASED [None]
  - VITAMIN B12 DECREASED [None]
  - DEPRESSION [None]
